FAERS Safety Report 4338502-9 (Version None)
Quarter: 2004Q2

REPORT INFORMATION
  Report Type: 
  Country: None (occurrence: None)
  Receive Date: 20040414
  Receipt Date: 20040401
  Transmission Date: 20050107
  Serious: Yes (Other)
  Sender: FDA-Public Use
  Company Number: GB-GLAXOSMITHKLINE-B0328842A

PATIENT
  Age: 73 Year
  Sex: Male

DRUGS (1)
  1. AMOXICILLIN [Suspect]
     Indication: ABSCESS
     Dosage: 500MG UNKNOWN
     Route: 048
     Dates: start: 20040305, end: 20040310

REACTIONS (2)
  - PERIORBITAL OEDEMA [None]
  - PRURITUS [None]
